FAERS Safety Report 9334536 (Version 1)
Quarter: 2013Q2

REPORT INFORMATION
  Report Type: Spontaneous
  Country: US (occurrence: US)
  Receive Date: 20130606
  Receipt Date: 20130606
  Transmission Date: 20140414
  Serious: No
  Sender: FDA-Public Use
  Company Number: US-AMGEN-USASP2013013495

PATIENT
  Age: 87 Year
  Sex: Female

DRUGS (3)
  1. PROLIA [Suspect]
     Indication: OSTEOPOROSIS POSTMENOPAUSAL
     Dosage: UNK UNK, Q6MO
     Dates: start: 201208
  2. OSCAL                              /00514701/ [Concomitant]
  3. OTHER ANTIHYPERTENSIVES [Concomitant]

REACTIONS (2)
  - Back pain [Unknown]
  - Musculoskeletal pain [Unknown]
